FAERS Safety Report 6437238-8 (Version None)
Quarter: 2009Q4

REPORT INFORMATION
  Report Type: 
  Country: None (occurrence: None)
  Receive Date: 20091112
  Receipt Date: 20091103
  Transmission Date: 20100525
  Serious: Yes (Hospitalization, Other)
  Sender: FDA-Public Use
  Company Number: BE-ROCHE-597304

PATIENT
  Sex: Male
  Weight: 58.5 kg

DRUGS (27)
  1. METHOXY POLYETHYLENE GLYCOL-EPOETIN BETA [Suspect]
     Dosage: FORM REPORTED AS PFS, LAST DOSE PRIOR TO SAE 20 FEB 2009.
     Route: 058
     Dates: start: 20081031
  2. METHOXY POLYETHYLENE GLYCOL-EPOETIN BETA [Suspect]
     Dosage: DOSE FORM PFS, LAST DOSE: 15 MAY 2009
     Route: 058
  3. NIFEDIPINE [Concomitant]
     Dates: start: 20030918
  4. ACETYLSALICYLIC ACID [Concomitant]
     Dates: start: 20030918
  5. AMIODARONE [Concomitant]
     Dates: start: 20030918
  6. MOLSIDOMINE [Concomitant]
     Dates: start: 20040426
  7. FERROUS SULFATE TAB [Concomitant]
     Dates: start: 20041104
  8. GLIQUIDONE [Concomitant]
     Dates: start: 20031031
  9. LEVOTHYROXINE [Concomitant]
     Dates: start: 20040128
  10. LORMETAZEPAM [Concomitant]
     Dates: start: 20030918
  11. CLOPIDOGREL [Concomitant]
     Dates: start: 20040726
  12. NITROGLYCERIN [Concomitant]
     Dates: start: 20040726
  13. PRIMIDONE [Concomitant]
     Dates: start: 20040726
  14. PRIMIDONE [Concomitant]
     Dates: start: 20081224
  15. SINEMET [Concomitant]
     Dosage: CARBIDOPA 50 MG/DAY / LEVODOPA 200 MG/DAY
     Dates: start: 20081031
  16. SINEMET [Concomitant]
     Dates: start: 20081225
  17. SIMVASTATIN [Concomitant]
     Dates: start: 20040426, end: 20081111
  18. SIMVASTATIN [Concomitant]
     Dates: start: 20090103
  19. VALSARTAN [Concomitant]
     Dates: start: 20030918, end: 20081111
  20. VALSARTAN [Concomitant]
     Dates: start: 20081225
  21. CHOLESTYRAMINE [Concomitant]
     Dates: start: 20081222
  22. GLUCONATE DE POTASSIUM [Concomitant]
     Dates: start: 20081222
  23. IPRATROPIUM BROMIDE [Concomitant]
     Dates: start: 20081224
  24. ALBUTEROL [Concomitant]
     Dosage: STRENGTH: 2.5MG/2.5 ML
  25. THEOPHYLLINE [Concomitant]
     Dates: start: 20090201
  26. DUOVENT [Concomitant]
     Dosage: DOSE FORM: PUFF TDD: AS NEEDED
     Dates: start: 20081124
  27. BARNIDIPINE HCL [Concomitant]
     Dosage: DRUG NAME REPORTED AS BARNIDIPINE CHLORHYDRATE
     Dates: start: 20080608

REACTIONS (4)
  - DIARRHOEA [None]
  - DIARRHOEA INFECTIOUS [None]
  - GASTROENTERITIS [None]
  - PSEUDOMEMBRANOUS COLITIS [None]
